FAERS Safety Report 22238960 (Version 2)
Quarter: 2024Q3

REPORT INFORMATION
  Report Type: Spontaneous
  Country: DK (occurrence: DK)
  Receive Date: 20230421
  Receipt Date: 20240702
  Transmission Date: 20241016
  Serious: Yes (Other)
  Sender: RANBAXY
  Company Number: DK-SUN PHARMACEUTICAL INDUSTRIES LTD-2023R1-383884

PATIENT

DRUGS (1)
  1. MORPHINE [Suspect]
     Active Substance: MORPHINE
     Indication: Product used for unknown indication
     Dosage: 0.1 MILLIGRAM/KILOGRAM
     Route: 042

REACTIONS (1)
  - Drug intolerance [Unknown]
